FAERS Safety Report 24798760 (Version 2)
Quarter: 2025Q4

REPORT INFORMATION
  Report Type: Spontaneous
  Country: EU (occurrence: EU)
  Receive Date: 20250102
  Receipt Date: 20251106
  Transmission Date: 20260118
  Serious: Yes (Hospitalization)
  Sender: AUROBINDO
  Company Number: EU-EGIS-HUN-2024-1496

PATIENT
  Age: 26 Year
  Sex: Female

DRUGS (17)
  1. ALPRAZOLAM [Suspect]
     Active Substance: ALPRAZOLAM
     Indication: Fear
     Dosage: 0.5 MILLIGRAM, Q8H
     Route: 065
  2. ALPRAZOLAM [Suspect]
     Active Substance: ALPRAZOLAM
     Indication: Anxiety
  3. SERTRALINE [Suspect]
     Active Substance: SERTRALINE HYDROCHLORIDE
     Indication: Depression
     Dosage: UNK(INITIAL DOSE WAS 50 MG ONCE DAILY FOLLOWED BY ITS ELEVATION TO 100 MG AFTER 10 DAYS.)
     Route: 065
  4. IBUPROFEN [Suspect]
     Active Substance: IBUPROFEN
     Indication: Urogenital disorder
     Dosage: UNK
     Route: 065
  5. ACETAMINOPHEN [Suspect]
     Active Substance: ACETAMINOPHEN
     Indication: Urogenital disorder
     Dosage: UNK
     Route: 065
  6. FLUCONAZOLE [Suspect]
     Active Substance: FLUCONAZOLE
     Indication: Urogenital disorder
     Dosage: UNK
     Route: 048
  7. CETIRIZINE [Suspect]
     Active Substance: CETIRIZINE HYDROCHLORIDE
     Indication: Urogenital disorder
     Dosage: UNK
     Route: 065
  8. CIPROFLOXACIN [Suspect]
     Active Substance: CIPROFLOXACIN
     Indication: Urogenital disorder
     Dosage: UNK
     Route: 065
  9. FURAZIDINE [Suspect]
     Active Substance: FURAZIDINE
     Indication: Urogenital disorder
     Dosage: UNK
     Route: 065
  10. HYDROXYZINE [Suspect]
     Active Substance: HYDROXYZINE HYDROCHLORIDE
     Indication: Urogenital disorder
     Dosage: UNK
     Route: 065
  11. CLOTRIMAZOLE [Suspect]
     Active Substance: CLOTRIMAZOLE
     Indication: Urogenital disorder
     Dosage: UNK
     Route: 067
  12. CODEINE PHOSPHATE [Suspect]
     Active Substance: CODEINE PHOSPHATE
     Indication: Urogenital disorder
     Dosage: UNK
     Route: 065
  13. NATAMYCIN [Suspect]
     Active Substance: NATAMYCIN
     Indication: Urogenital disorder
     Dosage: UNK
     Route: 067
  14. TIANEPTINE SODIUM [Suspect]
     Active Substance: TIANEPTINE SODIUM
     Indication: Urogenital disorder
     Dosage: UNK
     Route: 065
  15. CRANBERRY [Suspect]
     Active Substance: CRANBERRY
     Indication: Urogenital disorder
     Dosage: UNK
     Route: 065
  16. DULOXETINE [Concomitant]
     Active Substance: DULOXETINE
     Indication: Product used for unknown indication
     Dosage: 60 MILLIGRAM
     Route: 065
  17. VALPROIC ACID [Concomitant]
     Active Substance: VALPROIC ACID
     Indication: Product used for unknown indication
     Dosage: UNK (400 MG/3 H)
     Route: 065

REACTIONS (1)
  - Persistent genital arousal disorder [Recovered/Resolved]
